FAERS Safety Report 5500357-4 (Version None)
Quarter: 2007Q4

REPORT INFORMATION
  Report Type: 
  Country: None (occurrence: None)
  Receive Date: 20071025
  Receipt Date: 20071010
  Transmission Date: 20080405
  Serious: Yes (Hospitalization)
  Sender: FDA-Public Use
  Company Number: 2007BM000141

PATIENT
  Age: 65 Year
  Sex: Male

DRUGS (3)
  1. PREDNISONE [Suspect]
  2. AZATHIOPRINE [Suspect]
  3. ORAPRED [Suspect]

REACTIONS (6)
  - BLOOD CULTURE POSITIVE [None]
  - INTERVERTEBRAL DISCITIS [None]
  - OESOPHAGEAL VARICES HAEMORRHAGE [None]
  - RENAL FAILURE [None]
  - STAPHYLOCOCCAL INFECTION [None]
  - STENOTROPHOMONAS INFECTION [None]
